FAERS Safety Report 8805081 (Version 1)
Quarter: 2012Q4

REPORT INFORMATION
  Report Type: 
  Country: US (occurrence: US)
  Receive Date: 20120924
  Receipt Date: 20120924
  Transmission Date: 20130627
  Serious: Yes (Other)
  Sender: FDA-Public Use
  Company Number: US-FRI-1000038722

PATIENT
  Sex: Male

DRUGS (2)
  1. VIIBRYD [Suspect]
  2. VYTORIN [Suspect]

REACTIONS (1)
  - Penile haemorrhage [Unknown]
